APPROVED DRUG PRODUCT: RESTORIL
Active Ingredient: TEMAZEPAM
Strength: 15MG
Dosage Form/Route: CAPSULE;ORAL
Application: N018163 | Product #001 | TE Code: AB
Applicant: SPECGX LLC
Approved: Approved Prior to Jan 1, 1982 | RLD: Yes | RS: No | Type: RX